FAERS Safety Report 8978298 (Version 4)
Quarter: 2014Q3

REPORT INFORMATION
  Report Type: Spontaneous
  Country: US (occurrence: US)
  Receive Date: 20121220
  Receipt Date: 20140708
  Transmission Date: 20150326
  Serious: Yes (Disabling, Other)
  Sender: FDA-Public Use
  Company Number: US-009507513-1212USA005259

PATIENT
  Sex: Male
  Weight: 66.21 kg

DRUGS (1)
  1. PROPECIA [Suspect]
     Active Substance: FINASTERIDE
     Indication: ANDROGENETIC ALOPECIA
     Dosage: UNK
     Route: 048
     Dates: end: 2002

REACTIONS (26)
  - Musculoskeletal pain [Unknown]
  - Blood testosterone decreased [Unknown]
  - Rash [Unknown]
  - Sleep disorder [Unknown]
  - Somnolence [Unknown]
  - Musculoskeletal stiffness [Unknown]
  - Pain in extremity [Unknown]
  - Loss of libido [Unknown]
  - POEMS syndrome [Recovering/Resolving]
  - Asthenia [Unknown]
  - Azoospermia [Unknown]
  - Lesion excision [Unknown]
  - Biopsy chest wall [Unknown]
  - Decreased activity [Unknown]
  - Bone marrow transplant [Unknown]
  - Back pain [Unknown]
  - Urticaria [Unknown]
  - Inguinal hernia repair [Unknown]
  - Infertility [Unknown]
  - Renal failure [Recovered/Resolved]
  - Pulmonary embolism [Unknown]
  - Cognitive disorder [Not Recovered/Not Resolved]
  - Skin papilloma [Unknown]
  - Muscular weakness [Unknown]
  - Sexual dysfunction [Not Recovered/Not Resolved]
  - Breast pain [Unknown]

NARRATIVE: CASE EVENT DATE: 2002
